FAERS Safety Report 20865768 (Version 1)
Quarter: 2022Q2

REPORT INFORMATION
  Report Type: Spontaneous
  Country: PT (occurrence: PT)
  Receive Date: 20220524
  Receipt Date: 20220524
  Transmission Date: 20220721
  Serious: Yes (Disabling)
  Sender: FDA-Public Use
  Company Number: None

PATIENT
  Age: 52 Year
  Sex: Female

DRUGS (1)
  1. OCTREOTIDE [Suspect]
     Active Substance: OCTREOTIDE
     Indication: Carcinoid tumour
     Dosage: POWDER AND VEHICLE FOR INJECTABLE SUSPENSION , 1 MONTHLY ADMINISTRATION , UNIT DOSE : 30 MG , FREQUE
     Dates: start: 20210801

REACTIONS (3)
  - Injection site nodule [Not Recovered/Not Resolved]
  - Product substitution issue [Not Recovered/Not Resolved]
  - Injection site pain [Not Recovered/Not Resolved]

NARRATIVE: CASE EVENT DATE: 20210801
